FAERS Safety Report 9745614 (Version 1)
Quarter: 2013Q4

REPORT INFORMATION
  Report Type: Spontaneous
  Country: US (occurrence: US)
  Receive Date: 20131211
  Receipt Date: 20131211
  Transmission Date: 20140711
  Serious: Yes (Other)
  Sender: FDA-Public Use
  Company Number: US-NOVOPROD-394596

PATIENT
  Age: 14 Year
  Sex: Male
  Weight: 38.1 kg

DRUGS (2)
  1. NORDITROPIN FLEXPRO [Suspect]
     Indication: GROWTH RETARDATION
     Dosage: 1.5 MG DAILY
     Route: 058
     Dates: start: 20110927
  2. CHOLESTYRAMINE [Concomitant]
     Indication: CHOLESTASIS
     Dosage: UNKNOWN

REACTIONS (1)
  - Cataract [Recovered/Resolved]
